FAERS Safety Report 10080584 (Version 2)
Quarter: 2014Q2

REPORT INFORMATION
  Report Type: Spontaneous
  Country: JP (occurrence: JP)
  Receive Date: 20140416
  Receipt Date: 20140423
  Transmission Date: 20141212
  Serious: Yes (Other)
  Sender: FDA-Public Use
  Company Number: JP-UCBSA-117741

PATIENT
  Age: 72 Year
  Sex: Female

DRUGS (4)
  1. E KEPPRA [Suspect]
     Indication: EPILEPSY
     Route: 048
  2. DAIOKANZOTO [Suspect]
     Indication: MEGACOLON
     Dosage: 7.5 G
     Route: 048
  3. CLOBAZAM [Concomitant]
     Dosage: 10 MG
     Route: 048
  4. OLANZAPINE [Concomitant]

REACTIONS (4)
  - Anaemia [Recovering/Resolving]
  - Bladder tamponade [Unknown]
  - Renal impairment [Recovering/Resolving]
  - Cystitis haemorrhagic [Unknown]
